FAERS Safety Report 6418519-0 (Version None)
Quarter: 2009Q4

REPORT INFORMATION
  Report Type: 
  Country: None (occurrence: None)
  Receive Date: 20091028
  Receipt Date: 20091022
  Transmission Date: 20100525
  Serious: Yes (Hospitalization)
  Sender: FDA-Public Use
  Company Number: BR-ABBOTT-09P-020-0604639-00

PATIENT
  Sex: Female
  Weight: 67 kg

DRUGS (5)
  1. HUMIRA [Suspect]
     Indication: RHEUMATOID ARTHRITIS
     Route: 058
  2. LEFLUNOMIDE [Concomitant]
     Indication: RHEUMATOID ARTHRITIS
     Route: 048
     Dates: start: 20040101
  3. PREDNISONE TAB [Concomitant]
     Indication: PAIN
     Dosage: FORM STRENGTH 5 MG
     Route: 048
  4. BETA 30 (?) [Concomitant]
     Indication: PAIN
     Route: 048
     Dates: start: 20090815, end: 20090815
  5. ANGIPRESS [Concomitant]
     Indication: HYPERTENSION
     Dosage: FORM STRENGTH
     Route: 048

REACTIONS (3)
  - HAEMATOMA [None]
  - IMMUNODEFICIENCY [None]
  - OSTEOARTHRITIS [None]
